FAERS Safety Report 22654681 (Version 3)
Quarter: 2023Q4

REPORT INFORMATION
  Report Type: Spontaneous
  Country: NO (occurrence: NO)
  Receive Date: 20230629
  Receipt Date: 20231026
  Transmission Date: 20240110
  Serious: Yes (Life-Threatening, Hospitalization, Other)
  Sender: FDA-Public Use
  Company Number: NO-NOVOPROD-1080820

PATIENT
  Age: 62 Year
  Sex: Female

DRUGS (3)
  1. OZEMPIC [Suspect]
     Active Substance: SEMAGLUTIDE
     Dosage: 0.5 MG TO 1 MG WEEKLY (DOSE REDUCED)
     Route: 058
  2. OZEMPIC [Suspect]
     Active Substance: SEMAGLUTIDE
     Indication: Obesity
     Dosage: 1.5 MG, QW
     Route: 058
     Dates: start: 202212
  3. OZEMPIC [Suspect]
     Active Substance: SEMAGLUTIDE
     Indication: Type 2 diabetes mellitus
     Dosage: UNK (MAX DOSE)
     Route: 058
     Dates: start: 202202

REACTIONS (9)
  - Nephrolithiasis [Recovered/Resolved with Sequelae]
  - Cholecystitis acute [Recovered/Resolved with Sequelae]
  - Gallbladder rupture [Recovered/Resolved with Sequelae]
  - Sepsis [Recovered/Resolved with Sequelae]
  - Hydronephrosis [Recovered/Resolved with Sequelae]
  - Pyelonephritis [Recovered/Resolved with Sequelae]
  - Cholecystectomy [Recovered/Resolved with Sequelae]
  - Chronic kidney disease [Unknown]
  - Cholelithiasis [Recovered/Resolved with Sequelae]

NARRATIVE: CASE EVENT DATE: 20220222
